FAERS Safety Report 9240048 (Version 1)
Quarter: 2013Q2

REPORT INFORMATION
  Report Type: Spontaneous
  Country: US (occurrence: US)
  Receive Date: 20130418
  Receipt Date: 20130418
  Transmission Date: 20140414
  Serious: No
  Sender: FDA-Public Use
  Company Number: US-SANOFI-AVENTIS-2012SA047364

PATIENT
  Sex: Female

DRUGS (2)
  1. LOVENOX [Suspect]
     Indication: COAGULOPATHY
     Route: 065
     Dates: start: 201205
  2. LOVENOX [Suspect]
     Indication: COAGULOPATHY
     Route: 065
     Dates: start: 20120701, end: 20120701

REACTIONS (2)
  - Exposure during pregnancy [Unknown]
  - Inappropriate schedule of drug administration [Unknown]
